FAERS Safety Report 6445664-6 (Version None)
Quarter: 2009Q4

REPORT INFORMATION
  Report Type: 
  Country: None (occurrence: None)
  Receive Date: 20091118
  Receipt Date: 20091118
  Transmission Date: 20100525
  Serious: Yes (Other)
  Sender: FDA-Public Use
  Company Number: None

PATIENT
  Age: 68 Year
  Sex: Male
  Weight: 65.77 kg

DRUGS (1)
  1. IODINE [Suspect]
     Indication: COMPUTERISED TOMOGRAM
     Dosage: ONCE IV
     Route: 042
     Dates: start: 20090812, end: 20090812

REACTIONS (8)
  - DIZZINESS [None]
  - ERYTHEMA [None]
  - HYPOTENSION [None]
  - MALAISE [None]
  - NAUSEA [None]
  - RASH [None]
  - THROAT TIGHTNESS [None]
  - VOMITING [None]
